FAERS Safety Report 18806318 (Version 2)
Quarter: 2021Q1

REPORT INFORMATION
  Report Type: Report from Study
  Country: US (occurrence: US)
  Receive Date: 20210129
  Receipt Date: 20210301
  Transmission Date: 20210419
  Serious: Yes (Hospitalization)
  Sender: FDA-Public Use
  Company Number: US-GILEAD-2021-0514918

PATIENT
  Age: 2 Year
  Sex: Male

DRUGS (4)
  1. REMODULIN [Suspect]
     Active Substance: TREPROSTINIL
     Dosage: 1 MG, Q1SECOND
     Route: 065
     Dates: start: 20190803
  2. AMBRISENTAN [Suspect]
     Active Substance: AMBRISENTAN
     Dosage: 5 MG, QD
     Route: 065
     Dates: start: 20201224
  3. AMBRISENTAN [Suspect]
     Active Substance: AMBRISENTAN
     Indication: PULMONARY HYPERTENSION
     Dosage: 2.5 MG, QD
     Route: 065
     Dates: start: 20201224
  4. REMODULIN [Suspect]
     Active Substance: TREPROSTINIL
     Indication: PULMONARY ARTERIAL HYPERTENSION
     Dosage: 38 NG, Q1SECOND
     Route: 065
     Dates: start: 20190803

REACTIONS (3)
  - Off label use [Unknown]
  - COVID-19 [Unknown]
  - Liver disorder [Unknown]

NARRATIVE: CASE EVENT DATE: 202101
